FAERS Safety Report 21778109 (Version 1)
Quarter: 2022Q4

REPORT INFORMATION
  Report Type: Spontaneous
  Country: US (occurrence: US)
  Receive Date: 20221226
  Receipt Date: 20221226
  Transmission Date: 20230113
  Serious: No
  Sender: FDA-Public Use
  Company Number: US-009507513-2212USA005917

PATIENT
  Age: 37 Year
  Sex: Male

DRUGS (3)
  1. NOXAFIL [Suspect]
     Active Substance: POSACONAZOLE
     Indication: Coccidioidomycosis
     Dosage: 300 MILLIGRAM, DAILY
     Route: 048
  2. NOXAFIL [Suspect]
     Active Substance: POSACONAZOLE
     Dosage: 5.78 MCG/ML, ELEVATED
     Route: 048
  3. NOXAFIL [Suspect]
     Active Substance: POSACONAZOLE
     Dosage: 200 MILLIGRAM, DAILY, DOSE DECREASED AFTER AE
     Route: 048

REACTIONS (2)
  - Pseudoaldosteronism [Recovering/Resolving]
  - Incorrect dose administered [Unknown]
